FAERS Safety Report 17123247 (Version 2)
Quarter: 2019Q4

REPORT INFORMATION
  Report Type: Report from Study
  Country: US (occurrence: US)
  Receive Date: 20191206
  Receipt Date: 20191220
  Transmission Date: 20200122
  Serious: Yes (Other)
  Sender: FDA-Public Use
  Company Number: US-BRISTOL-MYERS SQUIBB COMPANY-BMS-2019-113904

PATIENT
  Age: 57 Year
  Sex: Male

DRUGS (2)
  1. IPILIMUMAB [Suspect]
     Active Substance: IPILIMUMAB
     Indication: PITUITARY TUMOUR
     Dosage: UNK
     Route: 065
     Dates: start: 20191011
  2. NIVOLUMAB [Suspect]
     Active Substance: NIVOLUMAB
     Indication: PITUITARY TUMOUR
     Dosage: UNK
     Route: 065
     Dates: start: 20191011

REACTIONS (2)
  - Hyponatraemia [Recovered/Resolved]
  - Pyrexia [Recovered/Resolved]

NARRATIVE: CASE EVENT DATE: 20191122
